FAERS Safety Report 4312771-3 (Version None)
Quarter: 2004Q1

REPORT INFORMATION
  Report Type: 
  Country: None (occurrence: None)
  Receive Date: 20040304
  Receipt Date: 20040219
  Transmission Date: 20041129
  Serious: Yes (Other)
  Sender: FDA-Public Use
  Company Number: HQWYE353526FEB04

PATIENT
  Age: 6 Year
  Sex: Female

DRUGS (1)
  1. EFFEXOR [Suspect]
     Indication: MENTAL DISORDER
     Route: 048
     Dates: start: 20031001

REACTIONS (4)
  - AGGRESSION [None]
  - DRUG INEFFECTIVE [None]
  - HAIR PLUCKING [None]
  - INTENTIONAL SELF-INJURY [None]
